FAERS Safety Report 22234644 (Version 1)
Quarter: 2023Q2

REPORT INFORMATION
  Report Type: Spontaneous
  Country: NL (occurrence: NL)
  Receive Date: 20230420
  Receipt Date: 20230420
  Transmission Date: 20230721
  Serious: Yes (Other)
  Sender: FDA-Public Use
  Company Number: NL-METUCHEN-STN-2023-0049

PATIENT
  Sex: Male
  Weight: 86 kg

DRUGS (3)
  1. STENDRA [Suspect]
     Active Substance: AVANAFIL
     Indication: Erectile dysfunction
     Route: 048
     Dates: start: 202303, end: 202303
  2. XARELTO [Suspect]
     Active Substance: RIVAROXABAN
     Indication: Arrhythmia
     Dates: start: 20211201
  3. METOPROLOL SUCCINATE [Concomitant]
     Active Substance: METOPROLOL SUCCINATE
     Indication: Product used for unknown indication

REACTIONS (2)
  - Drug interaction [Recovering/Resolving]
  - Gastric haemorrhage [Recovering/Resolving]

NARRATIVE: CASE EVENT DATE: 20230301
